FAERS Safety Report 20768106 (Version 2)
Quarter: 2022Q2

REPORT INFORMATION
  Report Type: Spontaneous
  Country: US (occurrence: US)
  Receive Date: 20220429
  Receipt Date: 20220530
  Transmission Date: 20220721
  Serious: No
  Sender: FDA-Public Use
  Company Number: US-NOVARTISTESTPH-NVSC2022US098929

PATIENT
  Sex: Female

DRUGS (1)
  1. COMBIPATCH [Suspect]
     Active Substance: ESTRADIOL\NORETHINDRONE ACETATE
     Indication: Hot flush
     Dosage: 1 DOSAGE FORM EVERY 3-4 DAYS
     Route: 062
     Dates: start: 2021

REACTIONS (6)
  - Product storage error [Not Recovered/Not Resolved]
  - Product adhesion issue [Recovered/Resolved]
  - Device adhesion issue [Recovered/Resolved]
  - Product colour issue [Recovered/Resolved]
  - Exposure via direct contact [Recovered/Resolved]
  - Product administered at inappropriate site [Not Recovered/Not Resolved]

NARRATIVE: CASE EVENT DATE: 20210101
